FAERS Safety Report 16788967 (Version 1)
Quarter: 2019Q3

REPORT INFORMATION
  Report Type: Spontaneous
  Country: FR (occurrence: FR)
  Receive Date: 20190910
  Receipt Date: 20190910
  Transmission Date: 20191005
  Serious: Yes (Other)
  Sender: FDA-Public Use
  Company Number: FR-TEVA-2019-FR-1103740

PATIENT
  Age: 27 Year
  Sex: Female

DRUGS (5)
  1. KLIPAL CODEINE 600 MG/50 MG, COMPRIME [Suspect]
     Active Substance: ACETAMINOPHEN\CODEINE PHOSPHATE
     Indication: PRODUCT USED FOR UNKNOWN INDICATION
     Dosage: JSUQU AT 4/DAY
     Route: 048
  2. AMOXICILLINE [Suspect]
     Active Substance: AMOXICILLIN
     Indication: PRODUCT USED FOR UNKNOWN INDICATION
     Dosage: 1-0-1 2 DOSAGE FORMS
     Route: 048
  3. PAROEX [Suspect]
     Active Substance: CHLORHEXIDINE GLUCONATE
     Indication: PRODUCT USED FOR UNKNOWN INDICATION
     Route: 048
  4. SOLUPRED (METHYLPREDNISOLONE) [Suspect]
     Active Substance: METHYLPREDNISOLONE
     Indication: PRODUCT USED FOR UNKNOWN INDICATION
     Dosage: 3-0-0 3 DOSAGE FORMS
     Route: 048
  5. INEXIUM [Suspect]
     Active Substance: ESOMEPRAZOLE
     Indication: PRODUCT USED FOR UNKNOWN INDICATION
     Dosage: 1-0-0 1 DOSAGE FORM
     Route: 048

REACTIONS (2)
  - Drug dependence [Not Recovered/Not Resolved]
  - Prescription form tampering [Not Recovered/Not Resolved]
